FAERS Safety Report 6658104-9 (Version None)
Quarter: 2010Q1

REPORT INFORMATION
  Report Type: 
  Country: None (occurrence: None)
  Receive Date: 20100330
  Receipt Date: 20100319
  Transmission Date: 20100710
  Serious: Yes (Other)
  Sender: FDA-Public Use
  Company Number: US-ELI_LILLY_AND_COMPANY-US201003005788

PATIENT
  Sex: Female

DRUGS (1)
  1. BYETTA [Suspect]

REACTIONS (3)
  - NAUSEA [None]
  - RENAL FAILURE [None]
  - VOMITING [None]
